FAERS Safety Report 9122940 (Version 2)
Quarter: 2013Q2

REPORT INFORMATION
  Report Type: Spontaneous
  Country: US (occurrence: US)
  Receive Date: 20130227
  Receipt Date: 20130422
  Transmission Date: 20140414
  Serious: Yes (Hospitalization)
  Sender: FDA-Public Use
  Company Number: US-ELI_LILLY_AND_COMPANY-US201102004626

PATIENT
  Age: 97 Year
  Sex: Male
  Weight: 82.09 kg

DRUGS (10)
  1. FORTEO [Suspect]
     Indication: OSTEOPOROSIS
     Dosage: 20 UG, DAILY (1/D)
     Route: 058
     Dates: start: 20110208
  2. FORTEO [Suspect]
     Dosage: 20 UG, DAILY (1/D)
     Route: 058
  3. FORTEO [Suspect]
     Dosage: 20 UG, DAILY (1/D)
     Route: 058
     Dates: end: 20130101
  4. OMEPRAZOLE [Concomitant]
     Indication: GASTROOESOPHAGEAL REFLUX DISEASE
     Dosage: 20 MG, QD
  5. FUROSEMIDE [Concomitant]
     Dosage: 20 MG, QD
  6. LOSARTAN [Concomitant]
     Dosage: 1 DF, QD
  7. DILTIZEM [Concomitant]
     Dosage: 30 MG, BID
  8. IRON [Concomitant]
     Dosage: 130 MG, QD
  9. ASPIRIN [Concomitant]
     Dosage: 1 DF, QD
  10. CALCIUM [Concomitant]
     Dosage: 2 DF, QD

REACTIONS (3)
  - Hip fracture [Recovered/Resolved]
  - Fall [Recovered/Resolved]
  - Pain in extremity [Unknown]
